FAERS Safety Report 10153763 (Version 3)
Quarter: 2014Q2

REPORT INFORMATION
  Report Type: Spontaneous
  Country: US (occurrence: US)
  Receive Date: 20140506
  Receipt Date: 20140605
  Transmission Date: 20141212
  Serious: No
  Sender: FDA-Public Use
  Company Number: US-009507513-1404USA009090

PATIENT
  Sex: Female
  Weight: 88.44 kg

DRUGS (1)
  1. NEXPLANON [Suspect]
     Dosage: 68MG / ONE ROD EVERY THREE YEARS
     Route: 059
     Dates: start: 20131204, end: 20140415

REACTIONS (2)
  - Device breakage [Recovered/Resolved]
  - No adverse event [Unknown]
